FAERS Safety Report 9284415 (Version 1)
Quarter: 2013Q2

REPORT INFORMATION
  Report Type: Spontaneous
  Country: US (occurrence: US)
  Receive Date: 20130510
  Receipt Date: 20130510
  Transmission Date: 20140414
  Serious: Yes (Other)
  Sender: FDA-Public Use
  Company Number: CHPA2013US007683

PATIENT
  Age: 66 Year
  Sex: 0

DRUGS (1)
  1. GAS-X EXTRA STRENGTH SOFTGELS [Suspect]
     Indication: FLATULENCE
     Dosage: 2 DF, PRN
     Route: 048
     Dates: end: 20130502

REACTIONS (4)
  - Pain [Not Recovered/Not Resolved]
  - Immobile [Not Recovered/Not Resolved]
  - Walking aid user [Not Recovered/Not Resolved]
  - Ear disorder [Not Recovered/Not Resolved]
